FAERS Safety Report 7948340-3 (Version None)
Quarter: 2011Q4

REPORT INFORMATION
  Report Type: 
  Country: None (occurrence: None)
  Receive Date: 20111123
  Receipt Date: 20111114
  Transmission Date: 20120403
  Serious: Yes (Hospitalization)
  Sender: FDA-Public Use
  Company Number: 11-001221

PATIENT
  Age: 58 Year
  Sex: Female
  Weight: 63.5 kg

DRUGS (4)
  1. AMBIEN [Concomitant]
  2. SYNTHROID [Concomitant]
  3. ESTRACE [Suspect]
     Indication: VULVOVAGINAL DRYNESS
     Dosage: 3 G, BIW, VAGINAL
     Route: 067
     Dates: start: 20070101
  4. LEXAPRO [Concomitant]

REACTIONS (6)
  - ABDOMINAL PAIN LOWER [None]
  - BACK PAIN [None]
  - GALLBLADDER DISORDER [None]
  - DYSURIA [None]
  - NEPHROLITHIASIS [None]
  - URINARY TRACT INFECTION BACTERIAL [None]
